FAERS Safety Report 10506631 (Version 1)
Quarter: 2014Q4

REPORT INFORMATION
  Report Type: Spontaneous
  Country: IN (occurrence: IN)
  Receive Date: 20141009
  Receipt Date: 20141009
  Transmission Date: 20150528
  Serious: Yes (Hospitalization)
  Sender: FDA-Public Use
  Company Number: IN-AUROBINDO-AUR-APL-2014-10548

PATIENT
  Age: 4 Year
  Sex: Male

DRUGS (2)
  1. RISPERIDONE TABLET [Suspect]
     Active Substance: RISPERIDONE
     Indication: ATTENTION DEFICIT/HYPERACTIVITY DISORDER
     Dosage: 0.5 MG, DAILY
     Route: 048
  2. RISPERIDONE TABLET [Suspect]
     Active Substance: RISPERIDONE
     Dosage: 10 TABLETS OF 0.5 MG, UNK
     Route: 048

REACTIONS (11)
  - Accidental exposure to product by child [None]
  - Muscle rigidity [Unknown]
  - Vomiting [Unknown]
  - Movement disorder [Unknown]
  - Dysarthria [Unknown]
  - Drooling [Unknown]
  - Speech disorder [Unknown]
  - Abasia [Unknown]
  - Product use issue [Unknown]
  - Toxicity to various agents [Unknown]
  - Somnolence [Unknown]
